FAERS Safety Report 17397163 (Version 9)
Quarter: 2021Q2

REPORT INFORMATION
  Report Type: Report from Study
  Country: NL (occurrence: NL)
  Receive Date: 20200210
  Receipt Date: 20210622
  Transmission Date: 20210716
  Serious: Yes (Hospitalization, Other)
  Sender: FDA-Public Use
  Company Number: NL-MYLANLABS-2020M1013825

PATIENT
  Age: 19 Year
  Sex: Female
  Weight: 48.3 kg

DRUGS (25)
  1. MICROGYNON                         /00022701/ [Concomitant]
     Active Substance: ETHINYL ESTRADIOL\LEVONORGESTREL ACETATE
     Indication: HAEMORRHAGE
     Dosage: 1 DOSAGE FORM, QD
     Route: 048
  2. DALTEPARIN [Concomitant]
     Active Substance: DALTEPARIN
     Indication: THROMBOSIS
     Dosage: 12500 IU INTERNATIONAL UNIT(S), QD
     Route: 058
  3. DIPIDOLOR [Concomitant]
     Active Substance: PIRITRAMIDE
     Indication: PRODUCT USED FOR UNKNOWN INDICATION
     Dosage: UNK
     Route: 065
  4. PANOBINOSTAT [Suspect]
     Active Substance: PANOBINOSTAT
     Indication: GLIOMA
     Dosage: 40 MILLIGRAM, 3XW
     Route: 048
     Dates: start: 20191018, end: 20200131
  5. PANOBINOSTAT [Suspect]
     Active Substance: PANOBINOSTAT
     Dosage: 40 MILLIGRAM, 3XW, (THREE TIMES WEEKLY)
     Route: 048
     Dates: start: 20191202, end: 20200131
  6. OMEPRAZOLE. [Concomitant]
     Active Substance: OMEPRAZOLE
     Indication: ABDOMINAL PAIN UPPER
     Dosage: 20 MILLIGRAM, BID
     Route: 065
     Dates: start: 20180702, end: 20191119
  7. HIDROCORTISON [Concomitant]
     Active Substance: HYDROCORTISONE
     Indication: PRODUCT USED FOR UNKNOWN INDICATION
     Dosage: 10 MILLIGRAM, PRN, MAX 4DD
     Route: 048
  8. TOLPERISONE [Concomitant]
     Active Substance: TOLPERISONE
     Indication: MUSCLE SPASMS
     Dosage: 50 MILLIGRAM, TID
     Route: 048
  9. VITAMIN D                          /00107901/ [Concomitant]
     Active Substance: ERGOCALCIFEROL
     Indication: PRODUCT USED FOR UNKNOWN INDICATION
     Dosage: QD, 600 IU INTERNATIONAL UNIT(S)
     Route: 048
  10. COTRIMOXAZOLE [Concomitant]
     Active Substance: SULFAMETHOXAZOLE\TRIMETHOPRIM
     Indication: PROPHYLAXIS
     Dosage: 960 MILLIGRAM, QD
     Route: 065
     Dates: start: 20191018, end: 20191119
  11. BACLOFEN. [Concomitant]
     Active Substance: BACLOFEN
     Indication: MUSCLE SPASMS
     Dosage: 3 DOSAGE FORM, QD (5?5?10 MG)
     Route: 048
  12. ESOMEPRAZOL                        /01479301/ [Concomitant]
     Active Substance: ESOMEPRAZOLE
     Indication: ABDOMINAL PAIN UPPER
     Dosage: 40 MILLIGRAM, QD
     Route: 048
     Dates: start: 20191201, end: 20200201
  13. SOLIFENACINE [Concomitant]
     Active Substance: SOLIFENACIN
     Indication: URINARY INCONTINENCE
     Dosage: 5 MILLIGRAM, QD
     Route: 048
     Dates: start: 20190404, end: 20200201
  14. DICLOFENAC [Concomitant]
     Active Substance: DICLOFENAC
     Indication: OEDEMA
     Dosage: 50 MILLIGRAM, BID
     Route: 048
  15. EUTHYROX [Concomitant]
     Active Substance: LEVOTHYROXINE SODIUM
     Indication: PRODUCT USED FOR UNKNOWN INDICATION
     Dosage: 125 MILLIGRAM, QD
     Route: 048
     Dates: start: 20180920, end: 20191119
  16. OMEPRAZOLE. [Concomitant]
     Active Substance: OMEPRAZOLE
     Dosage: 20 MILLIGRAM, QD
     Route: 065
  17. EVEROLIMUS. [Suspect]
     Active Substance: EVEROLIMUS
     Indication: PRODUCT USED FOR UNKNOWN INDICATION
     Dosage: 5 MILLIGRAM, QD
     Route: 065
     Dates: start: 20191115
  18. TRAMADOL. [Concomitant]
     Active Substance: TRAMADOL
     Indication: PAIN
     Dosage: 100 MILLIGRAM, QD 50 MG BID
     Route: 065
     Dates: start: 20191115, end: 20200202
  19. MACROGOL [Concomitant]
     Active Substance: POLYETHYLENE GLYCOLS
     Indication: PRODUCT USED FOR UNKNOWN INDICATION
     Dosage: 10 GRAM, QD
     Route: 048
  20. COTRIMOXAZOLE [Concomitant]
     Active Substance: SULFAMETHOXAZOLE\TRIMETHOPRIM
     Indication: PRODUCT USED FOR UNKNOWN INDICATION
     Dosage: UNK
     Dates: start: 20191018, end: 20191119
  21. FUROSEMIDE. [Concomitant]
     Active Substance: FUROSEMIDE
     Indication: OEDEMA
     Dosage: 20 MILLIGRAM, QD
     Route: 048
     Dates: end: 20191018
  22. NITROFURANTOIN. [Concomitant]
     Active Substance: NITROFURANTOIN
     Indication: PROPHYLAXIS URINARY TRACT INFECTION
     Dosage: 100 MILLIGRAM, QD
     Route: 048
  23. PARACETAMOL [Concomitant]
     Active Substance: ACETAMINOPHEN
     Indication: PAIN
     Dosage: 1000 MILLIGRAM, TID
     Route: 048
  24. CLONIDINE. [Concomitant]
     Active Substance: CLONIDINE
     Indication: PRODUCT USED FOR UNKNOWN INDICATION
     Dosage: UNK
     Route: 065
  25. CELECOXIB. [Concomitant]
     Active Substance: CELECOXIB
     Indication: MYALGIA
     Dosage: 100 MILLIGRAM, BID
     Route: 048

REACTIONS (59)
  - Tachycardia [Not Recovered/Not Resolved]
  - Oesophagitis [Recovered/Resolved]
  - Impaired gastric emptying [Recovered/Resolved]
  - Disseminated intravascular coagulation [Recovering/Resolving]
  - Rash [Not Recovered/Not Resolved]
  - Leukocyturia [Unknown]
  - Candida infection [Unknown]
  - Diarrhoea [Not Recovered/Not Resolved]
  - Ileus paralytic [Recovered/Resolved]
  - Vena cava thrombosis [Recovering/Resolving]
  - Abdominal pain [Recovered/Resolved]
  - Concomitant disease aggravated [Not Recovered/Not Resolved]
  - Pruritus [Not Recovered/Not Resolved]
  - Red blood cells urine positive [Unknown]
  - Dry mouth [Not Recovered/Not Resolved]
  - Pyrexia [Recovered/Resolved]
  - Pelvic venous thrombosis [Recovering/Resolving]
  - Supraventricular tachycardia [Unknown]
  - Electrocardiogram ST segment abnormal [Recovered/Resolved]
  - Hypophosphataemia [Unknown]
  - Muscle spasms [Not Recovered/Not Resolved]
  - Protein urine present [Unknown]
  - Vomiting [Not Recovered/Not Resolved]
  - Thrombocytopenia [Unknown]
  - Hypokalaemia [Unknown]
  - Dry skin [Not Recovered/Not Resolved]
  - Fatigue [Recovered/Resolved]
  - Infection [Unknown]
  - Epistaxis [Recovered/Resolved]
  - Tremor [Not Recovered/Not Resolved]
  - Neck pain [Not Recovered/Not Resolved]
  - Nausea [Not Recovered/Not Resolved]
  - Gastritis [Unknown]
  - Inflammation [Unknown]
  - Musculoskeletal pain [Not Recovered/Not Resolved]
  - Eye pain [Not Recovered/Not Resolved]
  - Pyelonephritis [Recovered/Resolved]
  - Enteritis [Recovered/Resolved]
  - White blood cell count decreased [Unknown]
  - Blood magnesium decreased [Unknown]
  - Blood creatinine decreased [Unknown]
  - Arthralgia [Not Recovered/Not Resolved]
  - Influenza like illness [Recovered/Resolved]
  - Decreased appetite [Recovering/Resolving]
  - Oedema peripheral [Recovering/Resolving]
  - Eczema [Not Recovered/Not Resolved]
  - Malaise [Not Recovered/Not Resolved]
  - Bacterial test positive [Unknown]
  - Escherichia urinary tract infection [Unknown]
  - Odynophagia [Not Recovered/Not Resolved]
  - Neutrophil count decreased [Unknown]
  - Gastroenteritis viral [Unknown]
  - Increased tendency to bruise [Recovered/Resolved]
  - Chills [Not Recovered/Not Resolved]
  - Eructation [Not Recovered/Not Resolved]
  - Haematemesis [Recovered/Resolved]
  - Blood phosphorus decreased [Unknown]
  - Diplopia [Recovered/Resolved]
  - Abdominal pain upper [Not Recovered/Not Resolved]

NARRATIVE: CASE EVENT DATE: 20191018
